FAERS Safety Report 25044082 (Version 1)
Quarter: 2025Q1

REPORT INFORMATION
  Report Type: Other
  Country: AT (occurrence: AT)
  Receive Date: 20250306
  Receipt Date: 20250306
  Transmission Date: 20250409
  Serious: Yes (Hospitalization)
  Sender: TOLMAR
  Company Number: AT-BAYER-2024A168687

PATIENT
  Age: 64 Year
  Sex: Male
  Weight: 81.6 kg

DRUGS (4)
  1. ELIGARD [Suspect]
     Active Substance: LEUPROLIDE ACETATE
     Indication: Hormone-dependent prostate cancer
     Dosage: 22.5 MG EVERY THREE MONTH(OTHER)
     Route: 058
     Dates: start: 20240731, end: 20241122
  2. ELIGARD [Suspect]
     Active Substance: LEUPROLIDE ACETATE
     Indication: Hormone-dependent prostate cancer
  3. NUBEQA [Suspect]
     Active Substance: DAROLUTAMIDE
     Indication: Hormone-dependent prostate cancer
     Route: 048
     Dates: start: 20240808, end: 20241122
  4. DOCETAXEL [Suspect]
     Active Substance: DOCETAXEL
     Indication: Hormone-dependent prostate cancer
     Dosage: 149.25 MG, EVERY THREE WEEKS (Q21D)
     Route: 042
     Dates: start: 20240808, end: 20241122

REACTIONS (1)
  - Hot flush [Recovered/Resolved]

NARRATIVE: CASE EVENT DATE: 20241122
